FAERS Safety Report 6806055-9 (Version None)
Quarter: 2010Q2

REPORT INFORMATION
  Report Type: 
  Country: None (occurrence: None)
  Receive Date: 20100629
  Receipt Date: 20080204
  Transmission Date: 20101027
  Serious: No
  Sender: FDA-Public Use
  Company Number: US-PFIZER INC-2007096886

PATIENT
  Sex: Male
  Weight: 79.38 kg

DRUGS (3)
  1. TIKOSYN [Suspect]
     Indication: ATRIAL FIBRILLATION
     Dates: start: 20070501
  2. TOPROL-XL [Concomitant]
  3. WARFARIN SODIUM [Concomitant]

REACTIONS (4)
  - DECREASED APPETITE [None]
  - MALAISE [None]
  - NAUSEA [None]
  - WEIGHT DECREASED [None]
